FAERS Safety Report 9092037 (Version 1)
Quarter: 2013Q1

REPORT INFORMATION
  Report Type: Report from Study
  Country: US (occurrence: US)
  Receive Date: 20130201
  Receipt Date: 20130201
  Transmission Date: 20140127
  Serious: No
  Sender: FDA-Public Use
  Company Number: US-ABBOTT-12P-163-1022966-00

PATIENT
  Age: 68 Year
  Sex: Female

DRUGS (15)
  1. HUMIRA [Suspect]
     Indication: COLITIS ULCERATIVE
     Dates: start: 20121012
  2. ASACOL [Concomitant]
     Indication: PRODUCT USED FOR UNKNOWN INDICATION
  3. ADVAIR [Concomitant]
     Indication: ASTHMA
     Dosage: INHALER 50/100MG
  4. SINGULAIR [Concomitant]
     Indication: ASTHMA
  5. DILTIAZEM [Concomitant]
     Indication: HYPERTENSION
  6. DILTIAZEM [Concomitant]
     Indication: TACHYCARDIA
  7. DETROL LA [Concomitant]
     Indication: INCONTINENCE
  8. AMITRIPTYLINE [Concomitant]
     Indication: INCONTINENCE
  9. MULTIVITAMIN [Concomitant]
     Indication: PRODUCT USED FOR UNKNOWN INDICATION
     Dosage: DAILY
  10. CALCIUM [Concomitant]
     Indication: PRODUCT USED FOR UNKNOWN INDICATION
  11. FEXOFENADINE [Concomitant]
     Indication: HYPERSENSITIVITY
  12. PATADY [Concomitant]
     Indication: HYPERSENSITIVITY
     Dosage: EACH EYE
  13. ZYCAM [Concomitant]
     Indication: PRODUCT USED FOR UNKNOWN INDICATION
     Dosage: SPRAY
  14. BIOTIN [Concomitant]
     Indication: ALOPECIA
  15. ZINC [Concomitant]
     Indication: ALOPECIA
     Dosage: DAILY

REACTIONS (1)
  - Alopecia [Not Recovered/Not Resolved]
